FAERS Safety Report 5820295-7 (Version None)
Quarter: 2008Q3

REPORT INFORMATION
  Report Type: 
  Country: None (occurrence: None)
  Receive Date: 20080724
  Receipt Date: 20070530
  Transmission Date: 20090109
  Serious: No
  Sender: FDA-Public Use
  Company Number: A0653934A

PATIENT

DRUGS (1)
  1. AVANDIA [Suspect]
     Route: 048
     Dates: start: 20070505

REACTIONS (2)
  - CHEST PAIN [None]
  - DYSPNOEA [None]
